FAERS Safety Report 21716455 (Version 1)
Quarter: 2022Q4

REPORT INFORMATION
  Report Type: Spontaneous
  Country: US (occurrence: None)
  Receive Date: 20221209
  Receipt Date: 20221209
  Transmission Date: 20230112
  Serious: Yes (Other)
  Sender: FDA-Public Use
  Company Number: None

PATIENT
  Sex: Female

DRUGS (1)
  1. RETEVMO [Suspect]
     Active Substance: SELPERCATINIB
     Indication: Lung neoplasm malignant
     Dosage: 80MG BID ORAL ?
     Route: 048
     Dates: start: 202205, end: 202211

REACTIONS (3)
  - Blood bilirubin increased [None]
  - Hepatotoxicity [None]
  - Therapy change [None]
